FAERS Safety Report 18751998 (Version 2)
Quarter: 2022Q1

REPORT INFORMATION
  Report Type: Report from Study
  Country: US (occurrence: US)
  Receive Date: 20210118
  Receipt Date: 20220228
  Transmission Date: 20220423
  Serious: Yes (Other)
  Sender: FDA-Public Use
  Company Number: US-009507513-2101USA007691

PATIENT
  Age: 68 Year
  Sex: Female

DRUGS (4)
  1. BELSOMRA [Suspect]
     Active Substance: SUVOREXANT
     Indication: Insomnia
     Dosage: 1 TABLET ONCE DAILY
     Route: 048
     Dates: start: 202012, end: 202012
  2. BELSOMRA [Suspect]
     Active Substance: SUVOREXANT
     Dosage: 10 MILLIGRAM, QD (NIGHTLY)
     Dates: start: 202102
  3. BELSOMRA [Suspect]
     Active Substance: SUVOREXANT
     Dosage: 20 MILLIGRAM, QD (NIGHTLY)
  4. COVID-19 VACCINE NOS [Suspect]
     Active Substance: COVID-19 VACCINE NOS
     Dosage: UNK
     Dates: start: 202102

REACTIONS (9)
  - Multiple sclerosis relapse [Recovering/Resolving]
  - Middle insomnia [Recovering/Resolving]
  - Poor quality sleep [Recovering/Resolving]
  - Therapeutic product effect decreased [Recovering/Resolving]
  - Influenza like illness [Recovered/Resolved]
  - Fatigue [Recovered/Resolved]
  - Lethargy [Recovered/Resolved]
  - Insomnia [Unknown]
  - Illness [Unknown]

NARRATIVE: CASE EVENT DATE: 20201201
